FAERS Safety Report 4778007-4 (Version None)
Quarter: 2005Q3

REPORT INFORMATION
  Report Type: 
  Country: None (occurrence: None)
  Receive Date: 20050921
  Receipt Date: 20050902
  Transmission Date: 20060218
  Serious: Yes (Hospitalization)
  Sender: FDA-Public Use
  Company Number: JP_050907507

PATIENT
  Age: 73 Year
  Sex: Male

DRUGS (2)
  1. GEMZAR [Suspect]
     Indication: LUNG ADENOCARCINOMA
     Dosage: 1700 MG OTHER
     Route: 050
     Dates: start: 20050818, end: 20050818
  2. CARBOPLATIN [Concomitant]

REACTIONS (1)
  - RHABDOMYOLYSIS [None]
